FAERS Safety Report 8776072 (Version 1)
Quarter: 2012Q4

REPORT INFORMATION
  Report Type: 
  Country: SE (occurrence: SE)
  Receive Date: 20120910
  Receipt Date: 20120910
  Transmission Date: 20130627
  Serious: Yes (Other)
  Sender: FDA-Public Use
  Company Number: SE-MYLANLABS-2012S1018161

PATIENT
  Sex: Female

DRUGS (3)
  1. FLUDARABINE [Suspect]
     Indication: LEUKAEMIA RECURRENT
     Route: 065
  2. CYCLOPHOSPHAMIDE [Suspect]
     Indication: LEUKAEMIA RECURRENT
     Route: 065
  3. BENDAMUSTINE [Concomitant]
     Indication: LEUKAEMIA RECURRENT
     Route: 065
     Dates: start: 201003

REACTIONS (3)
  - Paraneoplastic pemphigus [Recovered/Resolved]
  - Respiratory moniliasis [Recovered/Resolved]
  - Neutropenia [Recovered/Resolved]
